FAERS Safety Report 4307535-0 (Version None)
Quarter: 2004Q1

REPORT INFORMATION
  Report Type: 
  Country: None (occurrence: None)
  Receive Date: 20040226
  Receipt Date: 20040218
  Transmission Date: 20041129
  Serious: Yes (Hospitalization)
  Sender: FDA-Public Use
  Company Number: 2004CG00345

PATIENT
  Age: 59 Year
  Sex: Male
  Weight: 88 kg

DRUGS (11)
  1. NEXIUM [Suspect]
     Dosage: 1 DF DAILY PO
     Route: 048
     Dates: start: 20031228
  2. ZESTRIL [Suspect]
     Dosage: 20 MG DAILY PO
     Route: 048
     Dates: start: 20040105
  3. TEGELINE [Suspect]
     Dosage: 53.3 G DAILY IV
     Route: 042
     Dates: start: 20040114, end: 20040116
  4. RIFADIN [Suspect]
     Dosage: 900 MG BID PO
     Route: 048
  5. CIFLOX [Suspect]
     Dosage: 500 MG BID PO
     Route: 048
     Dates: start: 20040113, end: 20040121
  6. LASILIX [Suspect]
     Dosage: 40 MG DAILY PO
     Route: 048
  7. EUPRESSYL [Suspect]
  8. MIXTARD ^NOVO NORDISK^ [Suspect]
  9. AMLOR [Suspect]
  10. CALCIDOSE [Suspect]
  11. PREVISCAN [Suspect]

REACTIONS (7)
  - ABDOMINAL PAIN UPPER [None]
  - ANAEMIA [None]
  - ELECTROCARDIOGRAM ABNORMAL [None]
  - HYPERKALAEMIA [None]
  - HYPONATRAEMIA [None]
  - RENAL FAILURE ACUTE [None]
  - TROPONIN I INCREASED [None]
